FAERS Safety Report 5018146-6 (Version None)
Quarter: 2006Q2

REPORT INFORMATION
  Report Type: 
  Country: None (occurrence: None)
  Receive Date: 20060530
  Receipt Date: 20050211
  Transmission Date: 20061013
  Serious: Yes (Other)
  Sender: FDA-Public Use
  Company Number: 2005029767

PATIENT
  Age: 79 Year
  Sex: Male
  Weight: 66 kg

DRUGS (5)
  1. LYRICA [Suspect]
     Indication: NEUROPATHY
     Dosage: 300 MG (150 MG, 2 IN 1 D), ORAL
     Route: 048
     Dates: start: 20041206, end: 20041225
  2. ATORVASTATIN CALCIUM [Concomitant]
  3. ISOSORBIDE (ISOSORBIDE) [Concomitant]
  4. RAMIPRIL [Concomitant]
  5. ACETAMINOPHEN [Concomitant]

REACTIONS (2)
  - BALANCE DISORDER [None]
  - DIPLOPIA [None]
